FAERS Safety Report 6491892-3 (Version None)
Quarter: 2009Q4

REPORT INFORMATION
  Report Type: 
  Country: None (occurrence: None)
  Receive Date: 20091125
  Receipt Date: 20090803
  Transmission Date: 20100525
  Serious: Yes (Hospitalization)
  Sender: FDA-Public Use
  Company Number: 2009BH012363

PATIENT
  Age: 33 Year
  Sex: Female

DRUGS (21)
  1. DIANEAL [Suspect]
     Indication: PERITONEAL DIALYSIS
     Dosage: 14 L; EVERY DAY; IP
     Route: 033
  2. DIANEAL [Suspect]
     Indication: PERITONEAL DIALYSIS
     Dosage: 2 L; EVERY DAY; IP
     Route: 033
  3. CARVEDILOL [Concomitant]
  4. CELLCEPT [Concomitant]
  5. EPOGEN [Concomitant]
  6. FOLIC ACID [Concomitant]
  7. GENTAK [Concomitant]
  8. GENTAMICIN [Concomitant]
  9. MEGACE [Concomitant]
  10. MIRALAX [Concomitant]
  11. NEPHRO-VITE RX [Concomitant]
  12. FISH OIL [Concomitant]
  13. PLAQUENIL [Concomitant]
  14. POTASSIUM CHLORIDE [Concomitant]
  15. PREDNISONE [Concomitant]
  16. PANTOPRAZOLE [Concomitant]
  17. RENAGEL [Concomitant]
  18. ROXICET [Concomitant]
  19. SYNTHROID [Concomitant]
  20. SIMVASTATIN [Concomitant]
  21. AMINO ACIDS [Concomitant]

REACTIONS (2)
  - PERITONITIS BACTERIAL [None]
  - PYREXIA [None]
